FAERS Safety Report 5325139-8 (Version None)
Quarter: 2007Q2

REPORT INFORMATION
  Report Type: 
  Country: None (occurrence: None)
  Receive Date: 20070511
  Receipt Date: 20070511
  Transmission Date: 20071010
  Serious: Yes (Life-Threatening)
  Sender: FDA-Public Use
  Company Number: None

PATIENT
  Sex: Female
  Weight: 70.7611 kg

DRUGS (2)
  1. BUPROPION HCL [Suspect]
     Indication: ANXIETY
     Dosage: 1 TABLET 1 X DAILY PO
     Route: 048
     Dates: start: 20070312, end: 20070508
  2. BUPROPION HCL [Suspect]
     Indication: DEPRESSION
     Dosage: 1 TABLET 1 X DAILY PO
     Route: 048
     Dates: start: 20070312, end: 20070508

REACTIONS (6)
  - ANXIETY [None]
  - DEPRESSION [None]
  - DRUG EFFECT DECREASED [None]
  - EMOTIONAL DISORDER [None]
  - FATIGUE [None]
  - PHARMACEUTICAL PRODUCT COMPLAINT [None]
